FAERS Safety Report 8242856-0 (Version None)
Quarter: 2012Q1

REPORT INFORMATION
  Report Type: 
  Country: None (occurrence: None)
  Receive Date: 20120329
  Receipt Date: 20120319
  Transmission Date: 20120608
  Serious: Yes (Hospitalization, Other)
  Sender: FDA-Public Use
  Company Number: US-JNJFOC-20120309119

PATIENT
  Sex: Female
  Weight: 64.4 kg

DRUGS (4)
  1. INFLIXIMAB, RECOMBINANT [Suspect]
     Indication: CROHN'S DISEASE
     Route: 042
     Dates: start: 20111111
  2. BUDESONIDE [Concomitant]
  3. MERCAPTOPURINE [Concomitant]
  4. INFLIXIMAB, RECOMBINANT [Suspect]
     Route: 042
     Dates: start: 20091215

REACTIONS (1)
  - INTESTINAL STENOSIS [None]
